FAERS Safety Report 10758204 (Version 1)
Quarter: 2015Q1

REPORT INFORMATION
  Report Type: Spontaneous
  Country: US (occurrence: None)
  Receive Date: 20150202
  Receipt Date: 20150202
  Transmission Date: 20150721
  Serious: Yes (Hospitalization)
  Sender: FDA-Public Use
  Company Number: None

PATIENT
  Age: 51 Year
  Sex: Male
  Weight: 113.2 kg

DRUGS (6)
  1. HYZAAR [Suspect]
     Active Substance: HYDROCHLOROTHIAZIDE\LOSARTAN POTASSIUM
     Route: 048
  2. ECOTRIN [Concomitant]
     Active Substance: ASPIRIN
  3. PROZAC [Concomitant]
     Active Substance: FLUOXETINE HYDROCHLORIDE
  4. TORADOL [Suspect]
     Active Substance: KETOROLAC TROMETHAMINE
     Indication: PAIN
     Route: 048
  5. COPAXONE [Concomitant]
     Active Substance: GLATIRAMER ACETATE
  6. IOHEXOL [Suspect]
     Active Substance: IOHEXOL
     Indication: SCAN WITH CONTRAST
     Route: 042

REACTIONS (5)
  - Alcohol use [None]
  - Metabolic acidosis [None]
  - Pancreatitis necrotising [None]
  - Acute kidney injury [None]
  - Hypovolaemia [None]

NARRATIVE: CASE EVENT DATE: 20140908
